FAERS Safety Report 5608644-6 (Version None)
Quarter: 2008Q1

REPORT INFORMATION
  Report Type: 
  Country: None (occurrence: None)
  Receive Date: 20080130
  Receipt Date: 20080118
  Transmission Date: 20080703
  Serious: Yes (Other)
  Sender: FDA-Public Use
  Company Number: US-PFIZER INC-2008006868

PATIENT
  Sex: Female

DRUGS (2)
  1. DILANTIN [Suspect]
  2. ZOLOFT [Suspect]
     Indication: DEPRESSION

REACTIONS (6)
  - ANTICONVULSANT DRUG LEVEL DECREASED [None]
  - ANTICONVULSANT DRUG LEVEL INCREASED [None]
  - DEPRESSION [None]
  - DISSOCIATIVE DISORDER [None]
  - FEELING ABNORMAL [None]
  - LETHARGY [None]
